FAERS Safety Report 24811294 (Version 3)
Quarter: 2025Q3

REPORT INFORMATION
  Report Type: Spontaneous
  Country: US (occurrence: US)
  Receive Date: 20250106
  Receipt Date: 20250809
  Transmission Date: 20251020
  Serious: Yes (Other)
  Sender: ALEXION PHARMACEUTICALS
  Company Number: US-AstraZeneca-CH-00776199A

PATIENT
  Age: 65 Year
  Sex: Male
  Weight: 115 kg

DRUGS (3)
  1. LYNPARZA [Suspect]
     Active Substance: OLAPARIB
     Indication: Pleural mesothelioma
     Dates: start: 20241002
  2. ATORVASTATIN [Concomitant]
     Active Substance: ATORVASTATIN
     Route: 065
  3. ELIQUIS [Concomitant]
     Active Substance: APIXABAN
     Route: 065

REACTIONS (21)
  - Kidney fibrosis [Unknown]
  - Arteriosclerosis coronary artery [Unknown]
  - Bladder transitional cell carcinoma [Not Recovered/Not Resolved]
  - Nephrocalcinosis [Unknown]
  - Benign prostatic hyperplasia [Unknown]
  - Neoplasm malignant [Not Recovered/Not Resolved]
  - Bladder neoplasm [Unknown]
  - Aortic arteriosclerosis [Unknown]
  - Pleural fibrosis [Unknown]
  - Spinal osteoarthritis [Unknown]
  - Fatigue [Unknown]
  - Red blood cell count decreased [Unknown]
  - Red cell distribution width increased [Unknown]
  - Bronchial wall thickening [Unknown]
  - Scar [Unknown]
  - Haematocrit decreased [Unknown]
  - Post procedural complication [Unknown]
  - Renal neoplasm [Unknown]
  - Muscle atrophy [Unknown]
  - Neoplasm prostate [Unknown]
  - Haematuria [Unknown]

NARRATIVE: CASE EVENT DATE: 20241226
